FAERS Safety Report 6936959-8 (Version None)
Quarter: 2010Q3

REPORT INFORMATION
  Report Type: 
  Country: None (occurrence: None)
  Receive Date: 20100823
  Receipt Date: 20091116
  Transmission Date: 20110219
  Serious: Yes (Other)
  Sender: FDA-Public Use
  Company Number: US-BRISTOL-MYERS SQUIBB COMPANY-14861363

PATIENT
  Age: 72 Year
  Sex: Female

DRUGS (2)
  1. CEFEPIME [Suspect]
  2. XIGRIS [Suspect]

REACTIONS (1)
  - CLOSTRIDIUM DIFFICILE COLITIS [None]
